FAERS Safety Report 6081734-2 (Version None)
Quarter: 2009Q1

REPORT INFORMATION
  Report Type: 
  Country: None (occurrence: None)
  Receive Date: 20090126
  Receipt Date: 20080526
  Transmission Date: 20090719
  Serious: Yes (Hospitalization)
  Sender: FDA-Public Use
  Company Number: WAES 0805USA05669

PATIENT
  Age: 23 Year
  Sex: Female
  Weight: 54.8852 kg

DRUGS (1)
  1. MECTIZAN [Suspect]
     Indication: ONCHOCERCIASIS
     Dosage: 4 TAB/1X/PO
     Route: 048
     Dates: start: 20080505, end: 20080505

REACTIONS (5)
  - ABDOMINAL PAIN UPPER [None]
  - ANOREXIA [None]
  - ARTHRALGIA [None]
  - HEADACHE [None]
  - VERTIGO [None]
